FAERS Safety Report 15256642 (Version 1)
Quarter: 2018Q3

REPORT INFORMATION
  Report Type: Spontaneous
  Country: US (occurrence: US)
  Receive Date: 20180718
  Receipt Date: 20180718
  Transmission Date: 20181010
  Serious: Yes (Hospitalization)
  Sender: FDA-Public Use
  Company Number: None

PATIENT
  Age: 61 Year
  Sex: Male
  Weight: 81.3 kg

DRUGS (13)
  1. HYDROCORTISONE CREAM 1% [Concomitant]
  2. TRIAMCINOLONE 0.1% [Concomitant]
     Active Substance: TRIAMCINOLONE
  3. CLOPIDOGREL [Suspect]
     Active Substance: CLOPIDOGREL BISULFATE
     Indication: ANTIPLATELET THERAPY
     Route: 048
     Dates: start: 20180108, end: 20180521
  4. ASPIRIN. [Concomitant]
     Active Substance: ASPIRIN
  5. LORATADINE 10 MG [Concomitant]
     Active Substance: LORATADINE
  6. LACTULOSE 10?20 G [Concomitant]
  7. METOPROLOL TARTRATE 25 MG [Concomitant]
     Active Substance: METOPROLOL TARTRATE
  8. NITROGLYCERINE 0.4 MG [Concomitant]
  9. ALPRAZOLAM 0.5 MG [Concomitant]
     Active Substance: ALPRAZOLAM
  10. MULTIVITAMIN [Concomitant]
     Active Substance: VITAMINS
  11. OXYCODONE IR 30 MG [Concomitant]
  12. IBUPROFEN 800 MG 2 DAYS PRIOR [Concomitant]
  13. ATORVASTATIN 10 MG [Concomitant]
     Active Substance: ATORVASTATIN

REACTIONS (2)
  - Gastrointestinal haemorrhage [None]
  - Gastric varices haemorrhage [None]

NARRATIVE: CASE EVENT DATE: 20180321
